FAERS Safety Report 9198908 (Version 2)
Quarter: 2013Q2

REPORT INFORMATION
  Report Type: Report from Study
  Country: US (occurrence: US)
  Receive Date: 20130329
  Receipt Date: 20130408
  Transmission Date: 20140414
  Serious: Yes (Life-Threatening, Hospitalization)
  Sender: FDA-Public Use
  Company Number: US-009507513-1303USA013540

PATIENT
  Age: 64 Year
  Sex: Female
  Weight: 86.1 kg

DRUGS (12)
  1. VORINOSTAT [Suspect]
     Indication: DIFFUSE LARGE B-CELL LYMPHOMA
     Dosage: 400 MG, QD, 21 DAYS CYCLE
     Route: 048
     Dates: start: 20130219, end: 20130223
  2. VORINOSTAT [Suspect]
     Dosage: 400 MG, QD, 21 DAYS CYCLE
     Route: 048
     Dates: start: 20120925, end: 20120929
  3. RITUXIMAB [Suspect]
     Indication: DIFFUSE LARGE B-CELL LYMPHOMA
     Dosage: 375 MG/M2, ONCE
     Route: 042
     Dates: start: 20130221, end: 20130221
  4. RITUXIMAB [Suspect]
     Dosage: 375 MG/M2, 21 DAYS CYCLE
     Route: 042
     Dates: start: 20120927, end: 20120927
  5. CYCLOPHOSPHAMIDE [Suspect]
     Indication: DIFFUSE LARGE B-CELL LYMPHOMA
     Dosage: 750 MG/M2, OVER 30-60 MINUTES, 21 DAYS CYCLE
     Route: 042
     Dates: start: 20130221, end: 20130221
  6. CYCLOPHOSPHAMIDE [Suspect]
     Dosage: 750 MG/M2, OVER 30-60 MINUTES, 21 DAYS CYCLE
     Route: 042
     Dates: start: 20120927, end: 20120927
  7. DOXORUBICIN [Suspect]
     Indication: DIFFUSE LARGE B-CELL LYMPHOMA
     Dosage: 50 MG/M2, ONCE, 21 DAYS CYCLE
     Route: 042
     Dates: start: 20130221, end: 20130221
  8. DOXORUBICIN [Suspect]
     Dosage: 50 MG/M2, ONCE, 21 DYAS CYCLE
     Route: 042
     Dates: start: 20120927, end: 20120927
  9. VINCRISTINE [Suspect]
     Indication: DIFFUSE LARGE B-CELL LYMPHOMA
     Dosage: 1.4 MG/M2, ONCE, 21 DAYS CYCLE
     Route: 042
     Dates: start: 20130221, end: 20130221
  10. VINCRISTINE [Suspect]
     Dosage: 1.4 MG/M2, ONCE, 21 DAYS CYCLE
     Dates: start: 20120927, end: 20120927
  11. PREDNISONE [Suspect]
     Indication: DIFFUSE LARGE B-CELL LYMPHOMA
     Dosage: 100 MG, QD, 21 DAYS CYCLE
     Route: 048
     Dates: start: 20130221, end: 20130225
  12. PREDNISONE [Suspect]
     Dosage: 100 MG, QD, 21 DAYS CYCLE
     Route: 048
     Dates: start: 20120927, end: 20121001

REACTIONS (4)
  - Sepsis [Recovered/Resolved]
  - Anaemia [Recovered/Resolved]
  - Febrile neutropenia [Recovered/Resolved]
  - Syncope [Recovered/Resolved]
